APPROVED DRUG PRODUCT: MD-60
Active Ingredient: DIATRIZOATE MEGLUMINE; DIATRIZOATE SODIUM
Strength: 52%;8%
Dosage Form/Route: INJECTABLE;INJECTION
Application: A087074 | Product #001
Applicant: MALLINCKRODT MEDICAL INC
Approved: Approved Prior to Jan 1, 1982 | RLD: No | RS: No | Type: DISCN